FAERS Safety Report 12639045 (Version 7)
Quarter: 2017Q1

REPORT INFORMATION
  Report Type: Spontaneous
  Country: FR (occurrence: FR)
  Receive Date: 20160809
  Receipt Date: 20170307
  Transmission Date: 20170428
  Serious: Yes (Death, Life-Threatening, Hospitalization, Other)
  Sender: FDA-Public Use
  Company Number: FR-CELGENEUS-FRA-2016081012

PATIENT
  Age: 76 Year
  Sex: Male
  Weight: 63.3 kg

DRUGS (11)
  1. OXYCONTIN [Concomitant]
     Active Substance: OXYCODONE HYDROCHLORIDE
     Indication: HYPERCALCAEMIA
     Route: 065
  2. REVLIMID [Suspect]
     Active Substance: LENALIDOMIDE
     Dosage: 5 MILLIGRAM
     Route: 048
     Dates: start: 20160702, end: 20160707
  3. STAGID [Concomitant]
     Active Substance: METFORMIN PAMOATE
     Indication: HYPERCALCAEMIA
     Route: 065
  4. DARATUMUMAB [Suspect]
     Active Substance: DARATUMUMAB
     Indication: PLASMA CELL MYELOMA
     Route: 041
     Dates: start: 20160701, end: 20160708
  5. DEXAMETHASONE. [Suspect]
     Active Substance: DEXAMETHASONE
     Indication: PLASMA CELL MYELOMA
     Route: 041
     Dates: start: 20160701
  6. INEXIUM [Concomitant]
     Active Substance: ESOMEPRAZOLE
     Indication: HYPERCALCAEMIA
     Route: 065
  7. IPERTEN [Concomitant]
     Active Substance: MANIDIPINE
     Indication: HYPERCALCAEMIA
     Route: 065
  8. OXYNORM [Concomitant]
     Active Substance: OXYCODONE HYDROCHLORIDE
     Indication: HYPERCALCAEMIA
     Route: 065
  9. JOSIR [Concomitant]
     Active Substance: TAMSULOSIN
     Indication: HYPERCALCAEMIA
     Route: 065
  10. REVLIMID [Suspect]
     Active Substance: LENALIDOMIDE
     Indication: PLASMA CELL MYELOMA
     Dosage: 10MG
     Route: 048
     Dates: start: 20160701, end: 20160701
  11. PRAVASTATIN. [Concomitant]
     Active Substance: PRAVASTATIN
     Indication: HYPERCALCAEMIA
     Route: 065

REACTIONS (2)
  - Cardio-respiratory arrest [Fatal]
  - Renal failure [Recovered/Resolved]

NARRATIVE: CASE EVENT DATE: 20160708
